FAERS Safety Report 8472514-9 (Version None)
Quarter: 2012Q2

REPORT INFORMATION
  Report Type: 
  Country: None (occurrence: None)
  Receive Date: 20120627
  Receipt Date: 20111216
  Transmission Date: 20120825
  Serious: No
  Sender: FDA-Public Use
  Company Number: US-AMGEN-USASP2011067853

PATIENT
  Age: 79 Year
  Sex: Female
  Weight: 83.9 kg

DRUGS (1)
  1. PROCRIT [Suspect]
     Indication: PRODUCT USED FOR UNKNOWN INDICATION
     Dosage: 1200 UNIT, Q2WK

REACTIONS (2)
  - HAEMOGLOBIN DECREASED [None]
  - ABNORMAL LOSS OF WEIGHT [None]
